FAERS Safety Report 25724298 (Version 2)
Quarter: 2025Q3

REPORT INFORMATION
  Report Type: Spontaneous
  Country: US (occurrence: US)
  Receive Date: 20250826
  Receipt Date: 20250919
  Transmission Date: 20251021
  Serious: No
  Sender: ROCHE
  Company Number: US-ROCHE-10000368488

PATIENT
  Sex: Male

DRUGS (7)
  1. HEMLIBRA [Suspect]
     Active Substance: EMICIZUMAB-KXWH
     Indication: Factor VIII deficiency
     Dosage: FOR DOSE 1.6 ML, USE 1 ML FROM THE 150 MG VIAL AND USE 0.6 ML FROM THE  105 MG VIAL FOR THE TOTAL DO
     Route: 058
     Dates: start: 202507
  2. DARUNAVIR [Concomitant]
     Active Substance: DARUNAVIR
  3. TRINTELLIX [Concomitant]
     Active Substance: VORTIOXETINE HYDROBROMIDE
  4. GENVOYA [Concomitant]
     Active Substance: COBICISTAT\ELVITEGRAVIR\EMTRICITABINE\TENOFOVIR ALAFENAMIDE FUMARATE
  5. TYLENOL [Concomitant]
     Active Substance: ACETAMINOPHEN
  6. BUPROPION [Concomitant]
     Active Substance: BUPROPION
  7. CLONAZEPAM [Concomitant]
     Active Substance: CLONAZEPAM

REACTIONS (5)
  - Haemorrhage [Recovered/Resolved]
  - Foot fracture [Unknown]
  - Off label use [Unknown]
  - Wrong technique in product usage process [Unknown]
  - Off label use [Unknown]
